FAERS Safety Report 12281769 (Version 1)
Quarter: 2016Q2

REPORT INFORMATION
  Report Type: Spontaneous
  Country: US (occurrence: None)
  Receive Date: 20160418
  Receipt Date: 20160418
  Transmission Date: 20160815
  Serious: Yes (Other)
  Sender: FDA-Public Use
  Company Number: None

PATIENT
  Age: 61 Year
  Sex: Female
  Weight: 66.68 kg

DRUGS (6)
  1. MAXCIDE [Concomitant]
  2. DALIRESP [Suspect]
     Active Substance: ROFLUMILAST
     Indication: CHRONIC OBSTRUCTIVE PULMONARY DISEASE
     Route: 048
  3. SENNA LAXATIVE [Concomitant]
     Active Substance: SENNOSIDES
  4. ALIVE VITAMINS [Concomitant]
  5. LINZESS [Concomitant]
     Active Substance: LINACLOTIDE
  6. VILERIA DOT [Concomitant]

REACTIONS (5)
  - Rhinorrhoea [None]
  - Headache [None]
  - Nausea [None]
  - Vomiting [None]
  - Dizziness [None]

NARRATIVE: CASE EVENT DATE: 20160411
